FAERS Safety Report 14604299 (Version 1)
Quarter: 2018Q1

REPORT INFORMATION
  Report Type: Spontaneous
  Country: US (occurrence: US)
  Receive Date: 20180306
  Receipt Date: 20180306
  Transmission Date: 20180509
  Serious: Yes (Other)
  Sender: FDA-Public Use
  Company Number: US-THE PROACTIV LLC-2043057

PATIENT
  Age: 13 Year
  Sex: Male

DRUGS (5)
  1. PROACTIV SOLUTION BLACKHEAD DISSOLVING [Suspect]
     Active Substance: SALICYLIC ACID
     Route: 061
     Dates: start: 20180130, end: 20180211
  2. ADAPALENE. [Concomitant]
     Active Substance: ADAPALENE
     Route: 061
     Dates: start: 20180130, end: 20180211
  3. CETAPHIL DERMACONTROL SPF 30 [Concomitant]
     Active Substance: AVOBENZONE\OCTISALATE\OCTOCRYLENE
     Route: 061
     Dates: start: 20180130, end: 20180211
  4. PROACTIV SOLUTION DEEP CLEANSING WASH [Suspect]
     Active Substance: SALICYLIC ACID
     Indication: ACNE
     Route: 061
     Dates: start: 20180130, end: 20180211
  5. PROACTIV MD DEEP CLEANSING WASH [Suspect]
     Active Substance: COSMETICS
     Route: 061
     Dates: start: 20180130, end: 20180211

REACTIONS (5)
  - Dizziness [Recovered/Resolved]
  - Dyspnoea [Recovered/Resolved]
  - Chest pain [Recovered/Resolved]
  - Chest discomfort [Recovered/Resolved]
  - Syncope [Recovered/Resolved]

NARRATIVE: CASE EVENT DATE: 20180211
